FAERS Safety Report 10077322 (Version 2)
Quarter: 2014Q2

REPORT INFORMATION
  Report Type: Spontaneous
  Country: US (occurrence: US)
  Receive Date: 20140414
  Receipt Date: 20140414
  Transmission Date: 20141212
  Serious: No
  Sender: FDA-Public Use
  Company Number: US-BANPHARM-20131319

PATIENT
  Age: 79 Year
  Sex: Male
  Weight: 63.5 kg

DRUGS (6)
  1. ALEVE LIQUID GELS 220 MG [Suspect]
     Indication: ARTHRITIS
     Dosage: 2 DF, BID,
     Route: 048
  2. ALEVE LIQUID GELS 220 MG [Suspect]
     Dosage: 2 DF, BID,
     Route: 048
  3. DIABETES MEDICATION [Concomitant]
  4. LOW DOSE BAYER ASPIRIN [Concomitant]
  5. OAD MENS HEALTH [Concomitant]
  6. HIGH BLOOD PRESSURE MEDICATION [Concomitant]

REACTIONS (3)
  - Incorrect dose administered [Not Recovered/Not Resolved]
  - Blister [Not Recovered/Not Resolved]
  - Blister [Not Recovered/Not Resolved]
